FAERS Safety Report 7466479-6 (Version None)
Quarter: 2011Q2

REPORT INFORMATION
  Report Type: 
  Country: None (occurrence: None)
  Receive Date: 20110509
  Receipt Date: 20100818
  Transmission Date: 20111010
  Serious: No
  Sender: FDA-Public Use
  Company Number: US-ALEXION-A201001033

PATIENT
  Sex: Female
  Weight: 56.236 kg

DRUGS (6)
  1. LOVENOX [Concomitant]
     Indication: ANTICOAGULANT THERAPY
  2. SOLIRIS [Suspect]
     Indication: PAROXYSMAL NOCTURNAL HAEMOGLOBINURIA
     Dosage: 900 MG, Q2W
     Dates: start: 20100407
  3. FOSAMAX [Concomitant]
     Indication: OSTEOPOROSIS
     Dosage: UNK
  4. COUMADIN [Suspect]
     Indication: ANTICOAGULANT THERAPY
     Dosage: 7 MG, UNK
     Dates: end: 20110110
  5. CALCIUM [Concomitant]
     Indication: OSTEOPOROSIS
     Dosage: UNK
  6. FOLIC ACID [Concomitant]

REACTIONS (4)
  - INTERNATIONAL NORMALISED RATIO DECREASED [None]
  - BLOOD CALCIUM INCREASED [None]
  - LETHARGY [None]
  - FATIGUE [None]
